FAERS Safety Report 8958249 (Version 1)
Quarter: 2012Q4

REPORT INFORMATION
  Report Type: 
  Country: US (occurrence: US)
  Receive Date: 20121211
  Receipt Date: 20121211
  Transmission Date: 20130627
  Serious: Yes (Hospitalization)
  Sender: FDA-Public Use
  Company Number: US-BAYER-2012-128760

PATIENT
  Age: 17 Year
  Sex: Female
  Weight: 48.44 kg

DRUGS (10)
  1. BEYAZ [Suspect]
  2. YAZ [Suspect]
  3. AUGMENTIN [Concomitant]
  4. PERCOCET [Concomitant]
  5. TYLENOL [Concomitant]
  6. MOTRIN [Concomitant]
  7. ZOFRAN [Concomitant]
  8. COLACE [Concomitant]
  9. NUTRITIONAL SUPPLEMENT [Concomitant]
  10. STOOL SOFTENER [Concomitant]

REACTIONS (1)
  - Mesenteric vein thrombosis [None]
